FAERS Safety Report 5814889-2 (Version None)
Quarter: 2008Q3

REPORT INFORMATION
  Report Type: 
  Country: None (occurrence: None)
  Receive Date: 20080718
  Receipt Date: 20080718
  Transmission Date: 20090109
  Serious: Yes (Other)
  Sender: FDA-Public Use
  Company Number: A0738339A

PATIENT
  Age: 29 Year
  Sex: Male

DRUGS (3)
  1. ALLI [Suspect]
     Dates: start: 20080601, end: 20080715
  2. BLOOD PRESSURE MEDICATION [Concomitant]
  3. ANTI-CHOLESTEROL MEDICATION [Concomitant]

REACTIONS (4)
  - ENTERITIS [None]
  - FLATULENCE [None]
  - GASTROINTESTINAL PAIN [None]
  - RECTAL DISCHARGE [None]
